FAERS Safety Report 5423866-5 (Version None)
Quarter: 2007Q3

REPORT INFORMATION
  Report Type: 
  Country: None (occurrence: None)
  Receive Date: 20070823
  Receipt Date: 20070809
  Transmission Date: 20080115
  Serious: Yes (Hospitalization)
  Sender: FDA-Public Use
  Company Number: FR-ROCHE-504097

PATIENT
  Age: 46 Year
  Sex: Male

DRUGS (3)
  1. ROVALCYTE [Suspect]
     Indication: DRUG USE FOR UNKNOWN INDICATION
     Dosage: GIVEN TWO TABLETS DAILY.
     Route: 048
     Dates: start: 20070531
  2. BACTRIM [Suspect]
     Indication: DRUG USE FOR UNKNOWN INDICATION
     Route: 048
     Dates: start: 20070510, end: 20070605
  3. KALETRA [Suspect]
     Indication: DRUG USE FOR UNKNOWN INDICATION
     Route: 048
     Dates: start: 20070525

REACTIONS (3)
  - RASH MACULO-PAPULAR [None]
  - SKIN EXFOLIATION [None]
  - TOXIC SKIN ERUPTION [None]
